FAERS Safety Report 4537685-5 (Version None)
Quarter: 2005Q1

REPORT INFORMATION
  Report Type: 
  Country: None (occurrence: None)
  Receive Date: 20041216
  Receipt Date: 20040907
  Transmission Date: 20050727
  Serious: Yes (Death, Hospitalization)
  Sender: FDA-Public Use
  Company Number: HQWYE876208SEP04

PATIENT
  Age: 17 Year
  Sex: Male

DRUGS (1)
  1. EFFEXOR XR [Suspect]
     Indication: DEPRESSION
     Dosage: 150 MG 1X PER 1 DAY, ORAL
     Route: 048
     Dates: start: 20040501, end: 20040820

REACTIONS (1)
  - COMPLETED SUICIDE [None]
